FAERS Safety Report 18987328 (Version 2)
Quarter: 2021Q2

REPORT INFORMATION
  Report Type: Spontaneous
  Country: GB (occurrence: GB)
  Receive Date: 20210309
  Receipt Date: 20210429
  Transmission Date: 20210717
  Serious: Yes (Disabling)
  Sender: FDA-Public Use
  Company Number: GB-TEVA-2021-GB-1885715

PATIENT
  Sex: Female

DRUGS (1)
  1. TAMOXIFEN [Suspect]
     Active Substance: TAMOXIFEN
     Route: 065

REACTIONS (1)
  - Balance disorder [Unknown]
